FAERS Safety Report 5971901-8 (Version None)
Quarter: 2008Q4

REPORT INFORMATION
  Report Type: 
  Country: None (occurrence: None)
  Receive Date: 20081125
  Receipt Date: 20081113
  Transmission Date: 20090506
  Serious: Yes (Hospitalization)
  Sender: FDA-Public Use
  Company Number: 231815K08USA

PATIENT
  Age: 42 Year
  Sex: Male
  Weight: 82 kg

DRUGS (9)
  1. REBIF [Suspect]
     Indication: MULTIPLE SCLEROSIS
     Dosage: 44 MCG, 3 IN 1 WEEKS, SUBCUTANEOUS
     Route: 058
     Dates: start: 20071001
  2. LISINOPRIL [Concomitant]
  3. METOPROLOL TARTRATE [Concomitant]
  4. LOVASTATIN [Concomitant]
  5. GLUCOPHAGE [Concomitant]
  6. GLUCOTROL [Concomitant]
  7. BUPRPION (BUPROPION) [Concomitant]
  8. ASPIRIN [Concomitant]
  9. RANITIDINE [Concomitant]

REACTIONS (6)
  - ANGIOPATHY [None]
  - BALANCE DISORDER [None]
  - DIZZINESS [None]
  - MYOCARDIAL INFARCTION [None]
  - PYREXIA [None]
  - WEIGHT DECREASED [None]
